FAERS Safety Report 6727965-7 (Version None)
Quarter: 2010Q2

REPORT INFORMATION
  Report Type: 
  Country: None (occurrence: None)
  Receive Date: 20100512
  Receipt Date: 20100122
  Transmission Date: 20101027
  Serious: No
  Sender: FDA-Public Use
  Company Number: 1000011444

PATIENT
  Age: 60 Year
  Sex: Female

DRUGS (12)
  1. SAVELLA [Suspect]
     Indication: FIBROMYALGIA
     Dosage: SEE IMAGE
     Route: 048
     Dates: start: 20091006, end: 20091006
  2. SAVELLA [Suspect]
     Indication: FIBROMYALGIA
     Dosage: SEE IMAGE
     Route: 048
     Dates: start: 20091007, end: 20091008
  3. SAVELLA [Suspect]
     Indication: FIBROMYALGIA
     Dosage: SEE IMAGE
     Route: 048
     Dates: start: 20091009, end: 20091012
  4. SAVELLA [Suspect]
     Indication: FIBROMYALGIA
     Dosage: SEE IMAGE
     Route: 048
     Dates: start: 20091013
  5. NEXIUM [Concomitant]
  6. SYNTHROID [Concomitant]
  7. ADVIL LIQUI-GELS [Concomitant]
  8. XANAX [Concomitant]
  9. MAXZIDE [Concomitant]
  10. ZOCOR [Concomitant]
  11. ESTROGEN [Concomitant]
  12. FISH OIL [Concomitant]

REACTIONS (4)
  - FATIGUE [None]
  - INSOMNIA [None]
  - NAUSEA [None]
  - TREMOR [None]
